APPROVED DRUG PRODUCT: PROPRANOLOL HYDROCHLORIDE
Active Ingredient: PROPRANOLOL HYDROCHLORIDE
Strength: 80MG
Dosage Form/Route: CAPSULE, EXTENDED RELEASE;ORAL
Application: A078065 | Product #002 | TE Code: AB
Applicant: ANDA REPOSITORY LLC
Approved: Jan 26, 2007 | RLD: No | RS: No | Type: RX